FAERS Safety Report 5731919-7 (Version None)
Quarter: 2008Q2

REPORT INFORMATION
  Report Type: 
  Country: None (occurrence: None)
  Receive Date: 20080506
  Receipt Date: 20080506
  Transmission Date: 20081010
  Serious: Yes (Life-Threatening, Hospitalization)
  Sender: FDA-Public Use
  Company Number: None

PATIENT
  Age: 40 Year
  Sex: Female
  Weight: 58.0604 kg

DRUGS (3)
  1. ATENOLOL [Suspect]
     Indication: HEADACHE
     Dosage: 30 TK ONE T PO QHS
     Route: 048
     Dates: start: 20051219, end: 20051229
  2. ATENOLOL [Suspect]
     Indication: HEADACHE
     Dosage: 30 TK ONE T PO QHS
     Route: 048
     Dates: start: 20051229, end: 20051229
  3. AVELOX [Concomitant]

REACTIONS (11)
  - ANGIOPATHY [None]
  - CHEST PAIN [None]
  - CHOKING [None]
  - COUGH [None]
  - DYSPNOEA [None]
  - HAEMOPTYSIS [None]
  - NASAL CONGESTION [None]
  - NASAL SEPTUM DEVIATION [None]
  - ORAL DISORDER [None]
  - VASCULITIS [None]
  - VEIN DISORDER [None]
